FAERS Safety Report 6679984-7 (Version None)
Quarter: 2010Q2

REPORT INFORMATION
  Report Type: 
  Country: None (occurrence: None)
  Receive Date: 20100413
  Receipt Date: 20100330
  Transmission Date: 20101027
  Serious: Yes (Hospitalization)
  Sender: FDA-Public Use
  Company Number: GB-MYLANLABS-2010S1005410

PATIENT
  Age: 65 Year
  Sex: Female

DRUGS (2)
  1. INDOMETHACIN SODIUM [Suspect]
     Indication: BACK PAIN
  2. INDOMETHACIN SODIUM [Suspect]

REACTIONS (1)
  - SPINAL CORD HAEMORRHAGE [None]
